FAERS Safety Report 16320120 (Version 1)
Quarter: 2019Q2

REPORT INFORMATION
  Report Type: Spontaneous
  Country: US (occurrence: US)
  Receive Date: 20190516
  Receipt Date: 20190516
  Transmission Date: 20190711
  Serious: No
  Sender: FDA-Public Use
  Company Number: US-HIKMA PHARMACEUTICALS USA INC.-US-H14001-18-07463

PATIENT
  Sex: Female

DRUGS (1)
  1. PREDNISONE. [Suspect]
     Active Substance: PREDNISONE
     Indication: PRODUCT USED FOR UNKNOWN INDICATION
     Route: 065

REACTIONS (11)
  - Injection site bruising [Unknown]
  - Vision blurred [Unknown]
  - Heart rate increased [Unknown]
  - Fluid retention [Unknown]
  - Dyspnoea [Unknown]
  - Mood altered [Unknown]
  - Gait disturbance [Unknown]
  - Muscular weakness [Unknown]
  - Peripheral swelling [Unknown]
  - Weight increased [Unknown]
  - Blood pressure increased [Unknown]
